FAERS Safety Report 19349571 (Version 1)
Quarter: 2021Q2

REPORT INFORMATION
  Report Type: Spontaneous
  Country: US (occurrence: US)
  Receive Date: 20210531
  Receipt Date: 20210531
  Transmission Date: 20210717
  Serious: No
  Sender: FDA-Public Use
  Company Number: US-BRISTOL-MYERS SQUIBB COMPANY-BMS-2021-051734

PATIENT
  Age: 46 Year
  Sex: Female
  Weight: 81.65 kg

DRUGS (4)
  1. FAMOTIDINE. [Concomitant]
     Active Substance: FAMOTIDINE
     Indication: NAUSEA
     Dosage: UNK
     Route: 065
  2. IBUPROFEN. [Concomitant]
     Active Substance: IBUPROFEN
     Indication: PRODUCT USED FOR UNKNOWN INDICATION
     Dosage: UNK
     Route: 065
  3. DOCUSATE [Concomitant]
     Active Substance: DOCUSATE
     Indication: NAUSEA
     Dosage: UNK
     Route: 065
  4. ORENCIA [Suspect]
     Active Substance: ABATACEPT
     Indication: RHEUMATOID ARTHRITIS
     Dosage: UNK UNK, QWK
     Route: 058
     Dates: start: 20210430

REACTIONS (4)
  - Headache [Unknown]
  - Nausea [Unknown]
  - Upper respiratory tract infection [Unknown]
  - Nasopharyngitis [Unknown]
